FAERS Safety Report 8947112 (Version 2)
Quarter: 2012Q4

REPORT INFORMATION
  Report Type: 
  Country: US (occurrence: US)
  Receive Date: 20121205
  Receipt Date: 20121227
  Transmission Date: 20130627
  Serious: No
  Sender: FDA-Public Use
  Company Number: US-PFIZER INC-2012303122

PATIENT
  Sex: Male

DRUGS (10)
  1. SUTENT [Suspect]
     Dosage: 50 mg, 1x/day
     Dates: start: 20121109
  2. CLONIDINE [Concomitant]
     Dosage: UNK, (for prn use)
  3. LISINOPRIL [Concomitant]
     Indication: BLOOD PRESSURE
     Dosage: 10 mg, 1x/day (daily)
  4. LEVOTHYROXINE [Concomitant]
     Dosage: UNK
  5. AMLODIPINE [Concomitant]
     Dosage: UNK
  6. TRAZODONE [Concomitant]
     Dosage: UNK
  7. LIPITOR [Concomitant]
     Dosage: UNK
  8. KEPPRA [Concomitant]
     Dosage: UNK
  9. METOPROLOL [Concomitant]
     Dosage: UNK
  10. HYDROCHLOROTHIAZIDE [Concomitant]
     Dosage: UNK

REACTIONS (5)
  - Fatigue [Unknown]
  - Decreased appetite [Unknown]
  - Diarrhoea [Unknown]
  - Mouth ulceration [Unknown]
  - Yellow skin [Unknown]
